FAERS Safety Report 8440903-4 (Version None)
Quarter: 2012Q2

REPORT INFORMATION
  Report Type: 
  Country: None (occurrence: None)
  Receive Date: 20120615
  Receipt Date: 20120605
  Transmission Date: 20120825
  Serious: Yes (Other)
  Sender: FDA-Public Use
  Company Number: IT-CELGENEUS-083-21880-12052323

PATIENT

DRUGS (4)
  1. GLIBEN [Concomitant]
     Dosage: 5 MILLIGRAM
     Route: 048
  2. NEXIUM [Concomitant]
     Dosage: 20 MILLIGRAM
     Route: 048
  3. REVLIMID [Suspect]
     Dosage: 10 MILLIGRAM
     Route: 048
     Dates: start: 20090925, end: 20101218
  4. ASPIRIN [Concomitant]
     Dosage: 75 MILLIGRAM
     Route: 048

REACTIONS (1)
  - BLADDER TRANSITIONAL CELL CARCINOMA [None]
